FAERS Safety Report 4431751-0 (Version None)
Quarter: 2004Q3

REPORT INFORMATION
  Report Type: 
  Country: None (occurrence: None)
  Receive Date: 20040818
  Receipt Date: 20040803
  Transmission Date: 20050211
  Serious: Yes (Hospitalization)
  Sender: FDA-Public Use
  Company Number: 188334

PATIENT
  Age: 77 Year
  Sex: Female
  Weight: 78.4723 kg

DRUGS (2)
  1. AVONEX [Suspect]
     Indication: MULTIPLE SCLEROSIS
  2. BLOOD PRESSURE MEDICATION (NOS) [Concomitant]

REACTIONS (3)
  - BEREAVEMENT [None]
  - DEPRESSION [None]
  - MULTIPLE SCLEROSIS [None]
